FAERS Safety Report 7722550-2 (Version None)
Quarter: 2011Q3

REPORT INFORMATION
  Report Type: 
  Country: None (occurrence: None)
  Receive Date: 20110831
  Receipt Date: 20110816
  Transmission Date: 20111222
  Serious: Yes (Other)
  Sender: FDA-Public Use
  Company Number: US-BAYER-2011-076194

PATIENT
  Sex: Female

DRUGS (6)
  1. PAROXETINE HCL [Concomitant]
     Indication: DEPRESSION
  2. CARBAMAZEPINE [Suspect]
     Dosage: UNK UNK, TID
     Route: 042
     Dates: start: 20100101
  3. ASPIRIN [Concomitant]
     Dosage: 81 MG, UNK
     Route: 048
  4. ASPIRIN [Suspect]
  5. PAROXETINE HCL [Concomitant]
     Indication: ANXIETY
     Dosage: 40 MG, QD
     Route: 048
  6. BENADRYL [Suspect]
     Indication: PRURITUS GENERALISED
     Dosage: 50 MG, TID
     Route: 042
     Dates: start: 20100101

REACTIONS (9)
  - OEDEMA PERIPHERAL [None]
  - SWOLLEN TONGUE [None]
  - PHARYNGEAL OEDEMA [None]
  - NEUROPATHY PERIPHERAL [None]
  - ABDOMINAL DISCOMFORT [None]
  - EYE SWELLING [None]
  - ERYTHEMA [None]
  - APHAGIA [None]
  - PRURITUS GENERALISED [None]
